FAERS Safety Report 11327589 (Version 1)
Quarter: 2015Q3

REPORT INFORMATION
  Report Type: Spontaneous
  Country: US (occurrence: None)
  Receive Date: 20150629
  Receipt Date: 20150629
  Transmission Date: 20151125
  Serious: No
  Sender: FDA-Public Use
  Company Number: A-NJ2014-107222

PATIENT
  Age: 62 Year
  Sex: Male

DRUGS (2)
  1. ADCIRCA [Concomitant]
     Active Substance: TADALAFIL
  2. OPSUMIT [Suspect]
     Active Substance: MACITENTAN
     Indication: PULMONARY ARTERIAL HYPERTENSION
     Route: 048
     Dates: start: 20141001

REACTIONS (8)
  - Bronchitis [None]
  - Headache [None]
  - Fatigue [None]
  - Urinary tract disorder [None]
  - Sinus congestion [None]
  - Nasal congestion [None]
  - Micturition urgency [None]
  - Bladder pain [None]
